FAERS Safety Report 4432271-X (Version None)
Quarter: 2004Q3

REPORT INFORMATION
  Report Type: 
  Country: None (occurrence: None)
  Receive Date: 20040820
  Receipt Date: 20040810
  Transmission Date: 20050211
  Serious: Yes (Hospitalization)
  Sender: FDA-Public Use
  Company Number: STA-AE-04-MTX-355

PATIENT
  Age: 69 Year
  Sex: Male

DRUGS (12)
  1. RHEUMATREX [Suspect]
     Indication: RHEUMATOID ARTHRITIS
     Dosage: 4 MG 1X PER 1 WK; ORAL
     Route: 048
     Dates: start: 20021009, end: 20021203
  2. RHEUMATREX [Suspect]
     Indication: RHEUMATOID ARTHRITIS
     Dosage: 6 MG 1X PER 1 WK; ORAL
     Route: 048
     Dates: start: 20021204, end: 20021224
  3. RHEUMATREX [Suspect]
     Indication: RHEUMATOID ARTHRITIS
     Dosage: 8MG 1X PER 1 WK; ORAL
     Route: 048
     Dates: start: 20021225, end: 20040302
  4. PREDNISOLONE [Suspect]
     Indication: RHEUMATOID ARTHRITIS
     Dosage: 5-20 MG/DAILY; ORAL
     Route: 048
     Dates: start: 20020601
  5. REMICADE [Suspect]
     Indication: RHEUMATOID ARTHRITIS
     Dosage: ^3 MG/DAY^; INTRAVENOUS
     Route: 042
     Dates: start: 20031113, end: 20031113
  6. REMICADE [Suspect]
     Indication: RHEUMATOID ARTHRITIS
     Dosage: ^3 MG/DAY^; INTRAVENOUS
     Route: 042
     Dates: start: 20031127, end: 20031127
  7. REMICADE [Suspect]
     Indication: RHEUMATOID ARTHRITIS
     Dosage: ^3 MG/DAY^; INTRAVENOUS
     Route: 042
     Dates: start: 20031224, end: 20031224
  8. RIMATIL    (BUCILLAMINE) [Concomitant]
  9. VOLTAREN [Concomitant]
  10. .... [Concomitant]
  11. SHIOSOL (SODIUM AUROTHIOMALATE) [Concomitant]
  12. PI (CAFFEINE/PARACETAMOL/PROMETHAZINE METHYLENE DISALICYLATE/SALCYLAMI [Concomitant]

REACTIONS (4)
  - ANOREXIA [None]
  - MALAISE [None]
  - PLEURAL FIBROSIS [None]
  - PULMONARY TUBERCULOSIS [None]
